FAERS Safety Report 4501184-7 (Version None)
Quarter: 2004Q3

REPORT INFORMATION
  Report Type: 
  Country: None (occurrence: None)
  Receive Date: 20040927
  Receipt Date: 20040813
  Transmission Date: 20050211
  Serious: No
  Sender: FDA-Public Use
  Company Number: USA040875438

PATIENT
  Age: 37 Year
  Sex: Male
  Weight: 100 kg

DRUGS (2)
  1. STRATTERA [Suspect]
     Indication: ATTENTION DEFICIT/HYPERACTIVITY DISORDER
     Dosage: 80 MG DAY
     Dates: start: 20040101
  2. ZOLOFT [Concomitant]

REACTIONS (4)
  - PRURITUS [None]
  - RASH GENERALISED [None]
  - SKIN WARM [None]
  - SOMNOLENCE [None]
